FAERS Safety Report 25412701 (Version 1)
Quarter: 2025Q2

REPORT INFORMATION
  Report Type: Spontaneous
  Country: GB (occurrence: GB)
  Receive Date: 20250609
  Receipt Date: 20250609
  Transmission Date: 20250717
  Serious: Yes (Other)
  Sender: AUROBINDO
  Company Number: GB-MHRA-MED-202505260153307150-LHSYT

PATIENT
  Age: 37 Year
  Sex: Female
  Weight: 71 kg

DRUGS (4)
  1. NORTRIPTYLINE [Suspect]
     Active Substance: NORTRIPTYLINE
     Indication: Adverse drug reaction
     Dosage: 75 MILLIGRAM, ONCE A DAY (AT NIGHT)
     Route: 065
     Dates: start: 20240115
  2. DIAZEPAM [Concomitant]
     Active Substance: DIAZEPAM
     Indication: Anxiety
     Route: 065
  3. ZOPICLONE [Concomitant]
     Active Substance: ZOPICLONE
     Indication: Initial insomnia
     Route: 065
  4. ABILIFY [Concomitant]
     Active Substance: ARIPIPRAZOLE
     Indication: Mental disorder
     Route: 065

REACTIONS (9)
  - Dry mouth [Not Recovered/Not Resolved]
  - Somnolence [Not Recovered/Not Resolved]
  - Headache [Not Recovered/Not Resolved]
  - Dysuria [Not Recovered/Not Resolved]
  - Sleep terror [Not Recovered/Not Resolved]
  - Neck pain [Not Recovered/Not Resolved]
  - Constipation [Recovering/Resolving]
  - Psychotic disorder [Not Recovered/Not Resolved]
  - Medication error [Unknown]

NARRATIVE: CASE EVENT DATE: 20240115
